FAERS Safety Report 23920239 (Version 10)
Quarter: 2025Q1

REPORT INFORMATION
  Report Type: Spontaneous
  Country: IN (occurrence: IN)
  Receive Date: 20240530
  Receipt Date: 20250310
  Transmission Date: 20250408
  Serious: Yes (Other)
  Sender: PFIZER
  Company Number: IN-PFIZER INC-PV202200038502

PATIENT
  Age: 42 Year
  Sex: Female
  Weight: 57.15 kg

DRUGS (7)
  1. PALBOCICLIB [Suspect]
     Active Substance: PALBOCICLIB
     Route: 048
     Dates: start: 202112
  2. CALCIUM [Concomitant]
     Active Substance: CALCIUM
  3. NEUKINE [Concomitant]
     Route: 058
  4. LETROZOLE [Concomitant]
     Active Substance: LETROZOLE
     Dosage: 2.5 MG, DAILY
  5. TRIPTORELIN PAMOATE [Concomitant]
     Active Substance: TRIPTORELIN PAMOATE
     Dosage: 3.75 MG, MONTHLY
     Route: 030
  6. CALCIUM CARBONATE\CHOLECALCIFEROL [Concomitant]
     Active Substance: CALCIUM CARBONATE\CHOLECALCIFEROL
     Dosage: 1 DF, DAILY
  7. ZOLEDRONIC ACID [Concomitant]
     Active Substance: ZOLEDRONIC ACID
     Route: 042

REACTIONS (13)
  - Oophorectomy bilateral [Unknown]
  - Blood pressure decreased [Recovered/Resolved]
  - Platelet count decreased [Unknown]
  - Back pain [Unknown]
  - Respiratory rate increased [Unknown]
  - Haemoglobin decreased [Unknown]
  - White blood cell count decreased [Unknown]
  - Asthenia [Unknown]
  - Headache [Unknown]
  - Heart rate increased [Recovered/Resolved]
  - Weight fluctuation [Unknown]
  - Pyrexia [Unknown]
  - Oxygen saturation decreased [Unknown]

NARRATIVE: CASE EVENT DATE: 20220917
